FAERS Safety Report 5314893-7 (Version None)
Quarter: 2007Q2

REPORT INFORMATION
  Report Type: 
  Country: None (occurrence: None)
  Receive Date: 20070502
  Receipt Date: 20070426
  Transmission Date: 20071010
  Serious: Yes (Life-Threatening, Other)
  Sender: FDA-Public Use
  Company Number: RU-ROCHE-495216

PATIENT
  Age: 37 Year
  Sex: Female

DRUGS (6)
  1. TAMIFLU [Suspect]
     Dosage: 3 SACHETS ON DAY 1 AND 2 SACHETS ON DAY 2
     Route: 065
  2. AURORIX [Interacting]
     Indication: DEPRESSION
     Route: 048
     Dates: start: 20070301
  3. AURORIX [Interacting]
     Route: 048
  4. AURORIX [Interacting]
     Route: 048
  5. AURORIX [Interacting]
     Route: 048
  6. THERAFLU [Suspect]
     Route: 048
     Dates: start: 20070401, end: 20070401

REACTIONS (3)
  - CONVULSION [None]
  - DRUG INEFFECTIVE [None]
  - DRUG INTERACTION [None]
